FAERS Safety Report 19145678 (Version 1)
Quarter: 2021Q2

REPORT INFORMATION
  Report Type: Report from Study
  Country: US (occurrence: US)
  Receive Date: 20210416
  Receipt Date: 20210416
  Transmission Date: 20210717
  Serious: Yes (Hospitalization)
  Sender: FDA-Public Use
  Company Number: US-JNJFOC-20210410696

PATIENT
  Age: 68 Year
  Sex: Female

DRUGS (1)
  1. SELEXIPAG [Suspect]
     Active Substance: SELEXIPAG
     Indication: PULMONARY ARTERIAL HYPERTENSION
     Route: 048
     Dates: start: 20210313, end: 20210406

REACTIONS (3)
  - Peripheral swelling [Unknown]
  - Product dose omission issue [Unknown]
  - Fluid retention [Unknown]

NARRATIVE: CASE EVENT DATE: 20210402
